FAERS Safety Report 6659674-7 (Version None)
Quarter: 2010Q1

REPORT INFORMATION
  Report Type: 
  Country: None (occurrence: None)
  Receive Date: 20100325
  Receipt Date: 20100319
  Transmission Date: 20100710
  Serious: Yes (Disabling)
  Sender: FDA-Public Use
  Company Number: URSO-2010-032 FUP1

PATIENT
  Age: 76 Year
  Sex: Male

DRUGS (9)
  1. URSO 50MG  (URSODEOXYCHOLIC ACID) [Suspect]
     Indication: CHOLELITHIASIS
     Dosage: 150 MG, ORAL
     Route: 048
     Dates: start: 20100112, end: 20100224
  2. FAMOTIDINE [Suspect]
  3. AMLODIPINE [Concomitant]
  4. SELIS (ENALAPRIL MALEATE) [Concomitant]
  5. GAMOFA (FAMOTIDINE) [Concomitant]
  6. CARBUTAN (CARBOCISTEINE) [Concomitant]
  7. MAGMITT (MAGNESIUM OXIDE) [Concomitant]
  8. AMARYL [Concomitant]
  9. MEDET (METFORMIN HYDROCHLORIDE) [Concomitant]

REACTIONS (1)
  - INTERSTITIAL LUNG DISEASE [None]
